FAERS Safety Report 5720407-X (Version None)
Quarter: 2008Q2

REPORT INFORMATION
  Report Type: 
  Country: None (occurrence: None)
  Receive Date: 20080428
  Receipt Date: 20080424
  Transmission Date: 20081010
  Serious: Yes (Other)
  Sender: FDA-Public Use
  Company Number: AU-BOEHRINGER INGELHEIM GMBH, GERMANY-2008-DE-02476GD

PATIENT
  Sex: Male
  Weight: 94 kg

DRUGS (2)
  1. PREDNISONE [Suspect]
  2. INSULIN [Concomitant]
     Indication: PANCREATIC INSUFFICIENCY

REACTIONS (3)
  - OSTEOPOROSIS [None]
  - PATHOLOGICAL FRACTURE [None]
  - RIB FRACTURE [None]
